FAERS Safety Report 21728815 (Version 1)
Quarter: 2022Q4

REPORT INFORMATION
  Report Type: Report from Study
  Country: HR (occurrence: HR)
  Receive Date: 20221214
  Receipt Date: 20221214
  Transmission Date: 20230112
  Serious: Yes (Other)
  Sender: FDA-Public Use
  Company Number: HR-TAKEDA-2022TUS096178

PATIENT
  Age: 4 Year
  Sex: Male
  Weight: 13.9 kg

DRUGS (8)
  1. TEDUGLUTIDE [Suspect]
     Active Substance: TEDUGLUTIDE
     Indication: Short-bowel syndrome
     Dosage: 0.5 MILLIGRAM
     Route: 058
     Dates: start: 20201201
  2. TEDUGLUTIDE [Suspect]
     Active Substance: TEDUGLUTIDE
     Indication: Short-bowel syndrome
     Dosage: 0.5 MILLIGRAM
     Route: 058
     Dates: start: 20201201
  3. TEDUGLUTIDE [Suspect]
     Active Substance: TEDUGLUTIDE
     Indication: Short-bowel syndrome
     Dosage: 0.5 MILLIGRAM
     Route: 058
     Dates: start: 20201201
  4. TEDUGLUTIDE [Suspect]
     Active Substance: TEDUGLUTIDE
     Indication: Short-bowel syndrome
     Dosage: 0.5 MILLIGRAM
     Route: 058
     Dates: start: 20201201
  5. GARAMYCIN [Concomitant]
     Active Substance: GENTAMICIN SULFATE
     Indication: Gastrointestinal bacterial overgrowth
     Dosage: 20 MILLIGRAM, QD
     Route: 050
     Dates: start: 201903
  6. IRON POLYMALTOSE [Concomitant]
     Active Substance: IRON POLYMALTOSE
     Indication: Gastrointestinal bacterial overgrowth
     Dosage: 30 MILLIGRAM, QD
     Route: 048
     Dates: start: 201903
  7. METRONIDAZOLE [Concomitant]
     Active Substance: METRONIDAZOLE
     Indication: Gastrointestinal bacterial overgrowth
     Dosage: 160 MILLIGRAM, QD
     Route: 050
     Dates: start: 201903
  8. CHOLECALCIFEROL [Concomitant]
     Active Substance: CHOLECALCIFEROL
     Indication: Gastrointestinal bacterial overgrowth
     Dosage: 16000 INTERNATIONAL UNIT, QD
     Route: 048
     Dates: start: 201903

REACTIONS (2)
  - Gastrointestinal motility disorder [Recovered/Resolved]
  - Intestinal obstruction [Recovered/Resolved]

NARRATIVE: CASE EVENT DATE: 20221205
